FAERS Safety Report 4967612-8 (Version None)
Quarter: 2006Q2

REPORT INFORMATION
  Report Type: 
  Country: None (occurrence: None)
  Receive Date: 20060407
  Receipt Date: 20060407
  Transmission Date: 20061013
  Serious: Yes (Hospitalization, Other)
  Sender: FDA-Public Use
  Company Number: None

PATIENT
  Sex: Female
  Weight: 86.3 kg

DRUGS (3)
  1. FLUOROURACIL [Suspect]
     Indication: COLON CANCER
     Dosage: 5735 MG
     Dates: start: 20060310
  2. LEUCOVORIN CALCIUM [Suspect]
     Dosage: 825 MG
     Dates: start: 20060308
  3. ELOXATIN [Suspect]
     Dosage: 175 MG
     Dates: start: 20060308

REACTIONS (5)
  - CLOSTRIDIAL INFECTION [None]
  - COMPUTERISED TOMOGRAM ABNORMAL [None]
  - LEUKOPENIA [None]
  - PULMONARY EMBOLISM [None]
  - STOMATITIS [None]
